FAERS Safety Report 15286003 (Version 2)
Quarter: 2018Q4

REPORT INFORMATION
  Report Type: Spontaneous
  Country: JP (occurrence: JP)
  Receive Date: 20180816
  Receipt Date: 20181012
  Transmission Date: 20190204
  Serious: Yes (Other)
  Sender: FDA-Public Use
  Company Number: JP-ELI_LILLY_AND_COMPANY-JP201808004530

PATIENT
  Sex: Female

DRUGS (4)
  1. PACLITAXEL. [Concomitant]
     Active Substance: PACLITAXEL
     Dosage: 60 MG/M2, OTHER
  2. PACLITAXEL. [Concomitant]
     Active Substance: PACLITAXEL
     Indication: ADENOCARCINOMA GASTRIC
     Dosage: 80 MG/M2, OTHER
  3. PACLITAXEL. [Concomitant]
     Active Substance: PACLITAXEL
     Dosage: 70 MG/M2, OTHER
  4. CYRAMZA [Suspect]
     Active Substance: RAMUCIRUMAB
     Indication: ADENOCARCINOMA GASTRIC
     Dosage: UNK
     Route: 041
     Dates: start: 201606

REACTIONS (4)
  - Malignant neoplasm progression [Unknown]
  - Hypoaesthesia [Unknown]
  - Malignant neoplasm progression [Unknown]
  - Jaundice cholestatic [Unknown]

NARRATIVE: CASE EVENT DATE: 201609
